FAERS Safety Report 9145904 (Version 1)
Quarter: 2013Q1

REPORT INFORMATION
  Report Type: Spontaneous
  Country: JP (occurrence: JP)
  Receive Date: 20130307
  Receipt Date: 20130307
  Transmission Date: 20140127
  Serious: Yes (Hospitalization)
  Sender: FDA-Public Use
  Company Number: JP-ASTRAZENECA-2013SE13589

PATIENT
  Age: 22 Year
  Sex: Female

DRUGS (1)
  1. ZOMIG [Suspect]
     Indication: HEADACHE
     Dosage: AS REQUIRED
     Route: 048

REACTIONS (1)
  - Palpitations [Unknown]
